FAERS Safety Report 5849975-4 (Version None)
Quarter: 2008Q3

REPORT INFORMATION
  Report Type: 
  Country: None (occurrence: None)
  Receive Date: 20080819
  Receipt Date: 20070306
  Transmission Date: 20090109
  Serious: No
  Sender: FDA-Public Use
  Company Number: MY-PFIZER INC-2007017884

PATIENT

DRUGS (2)
  1. SERTRALINE [Suspect]
     Dosage: TEXT:UNKNOWN
     Route: 064
  2. LORAZEPAM [Suspect]
     Dosage: TEXT:UNKNOWN
     Route: 064

REACTIONS (1)
  - NO ADVERSE EVENT [None]
